FAERS Safety Report 6578107-2 (Version None)
Quarter: 2010Q1

REPORT INFORMATION
  Report Type: 
  Country: None (occurrence: None)
  Receive Date: 20100211
  Receipt Date: 20100202
  Transmission Date: 20100710
  Serious: No
  Sender: FDA-Public Use
  Company Number: US-B.I. PHARMACEUTICALS,INC./RIDGEFIELD-2010-BP-00421BP

PATIENT
  Age: 64 Year
  Sex: Female
  Weight: 64.9 kg

DRUGS (6)
  1. MICARDIS [Suspect]
     Dosage: 80 MG
     Dates: end: 20100119
  2. ATENOLOL [Concomitant]
  3. PROZAC [Concomitant]
  4. AMBIEN [Concomitant]
     Dosage: 5 MG
  5. NATUROID [Concomitant]
     Dosage: 1.5 G
  6. CLIMEENRC PATCH [Concomitant]

REACTIONS (5)
  - BLISTER [None]
  - CONSTIPATION [None]
  - ERYTHEMA [None]
  - OEDEMA PERIPHERAL [None]
  - PRURITUS [None]
